FAERS Safety Report 16973613 (Version 1)
Quarter: 2019Q4

REPORT INFORMATION
  Report Type: Report from Study
  Country: AU (occurrence: AU)
  Receive Date: 20191030
  Receipt Date: 20191030
  Transmission Date: 20200122
  Serious: Yes (Life-Threatening, Hospitalization)
  Sender: FDA-Public Use
  Company Number: AU-60 DEGREES PHARMACEUTICALS, LLC-20191000002

PATIENT

DRUGS (34)
  1. ESCITALOPRAM [Concomitant]
     Active Substance: ESCITALOPRAM OXALATE
     Dosage: 20 MILLIGRAM, DAILY
     Route: 048
     Dates: start: 20190827, end: 20190904
  2. ESCITALOPRAM [Concomitant]
     Active Substance: ESCITALOPRAM OXALATE
     Dosage: 15 MILLIGRAM, AS PER REQUIRED
     Route: 048
     Dates: start: 201904, end: 201906
  3. ESCITALOPRAM [Concomitant]
     Active Substance: ESCITALOPRAM OXALATE
     Dosage: 15 MILLIGRAM, DAILY
     Route: 048
     Dates: start: 20190904
  4. TOPIRAMATE. [Concomitant]
     Active Substance: TOPIRAMATE
     Dosage: 37.5 MILLIGRAM, QD
     Route: 048
     Dates: start: 201904
  5. TOPIRAMATE. [Concomitant]
     Active Substance: TOPIRAMATE
     Dosage: 650 MILLIGRAM, ONCE
     Route: 048
     Dates: start: 20190904, end: 20190904
  6. RITALIN [Concomitant]
     Active Substance: METHYLPHENIDATE HYDROCHLORIDE
     Indication: ATTENTION DEFICIT/HYPERACTIVITY DISORDER
     Dosage: 15 AS PER REQUIRED
     Route: 048
     Dates: start: 2012
  7. MELATONIN [Concomitant]
     Active Substance: MELATONIN
     Indication: SUICIDE ATTEMPT
     Dosage: UNKNOWN QUANTITY
     Route: 048
     Dates: start: 20190904, end: 20190904
  8. LEXAPRO [Concomitant]
     Active Substance: ESCITALOPRAM OXALATE
     Dosage: 20 MILLIGRAM
  9. LEXAPRO [Concomitant]
     Active Substance: ESCITALOPRAM OXALATE
     Dosage: 15 MILLIGRAM AFTER BREAKFAST
  10. TAFENOQUINE SUCCINATE [Suspect]
     Active Substance: TAFENOQUINE SUCCINATE
     Indication: CLINICAL TRIAL PARTICIPANT
     Dosage: 200 MG ONCE WEEKLY
     Route: 048
     Dates: start: 20190318, end: 20190904
  11. MELATONIN [Concomitant]
     Active Substance: MELATONIN
     Indication: INSOMNIA
     Dosage: 3 MILLIGRAM, ONCE DAILY
     Route: 048
     Dates: start: 2008
  12. CONCERTA [Concomitant]
     Active Substance: METHYLPHENIDATE HYDROCHLORIDE
     Indication: ATTENTION DEFICIT/HYPERACTIVITY DISORDER
     Dosage: 18 MILLIGRAM, DAILY
     Route: 048
     Dates: start: 2019
  13. FISH OIL [Concomitant]
     Active Substance: FISH OIL
     Indication: SUPPLEMENTATION THERAPY
     Dosage: 1 DAILY
     Route: 048
     Dates: start: 2017
  14. ESCITALOPRAM [Concomitant]
     Active Substance: ESCITALOPRAM OXALATE
     Dosage: 20 MILLIGRAM, AS PER REQUIRED
     Route: 048
     Dates: start: 201904, end: 201906
  15. AVANZA [Concomitant]
     Active Substance: MIRTAZAPINE
     Dosage: 15 MILLIGRAM, 0.25-1 NOCTE 30 WITH 5 REPEARS
     Dates: start: 20190904
  16. TOPIRAMATE. [Concomitant]
     Active Substance: TOPIRAMATE
     Dosage: 25 MILLIGRAM, HALF TABLET IN MORNING AND ONE TABLET AT NIGHT
     Route: 048
  17. RITALIN [Concomitant]
     Active Substance: METHYLPHENIDATE HYDROCHLORIDE
     Dosage: 10 MILLIGRAM, 1 DAILY, 100 WITH 1 REPEAT
  18. RITALIN [Concomitant]
     Active Substance: METHYLPHENIDATE HYDROCHLORIDE
     Dosage: 10 MILLIGRAM, 2 DAILY, 100 WITH 3 REPEATS
  19. TRIMETHOPRIM. [Concomitant]
     Active Substance: TRIMETHOPRIM
     Indication: URINARY TRACT INFECTION
     Dosage: 300 DAILY
     Route: 048
     Dates: start: 20190912, end: 20190919
  20. CEPHALEXINE [Concomitant]
     Active Substance: CEPHALEXIN
     Indication: URINARY TRACT INFECTION
     Dosage: 500, TID
     Route: 048
     Dates: start: 20190903, end: 20190908
  21. ESCITALOPRAM [Concomitant]
     Active Substance: ESCITALOPRAM OXALATE
     Dosage: 280 MILLIGRAM, ONCE
     Route: 048
     Dates: start: 20190904, end: 20190904
  22. TOPIRAMATE. [Concomitant]
     Active Substance: TOPIRAMATE
     Indication: MIGRAINE PROPHYLAXIS
     Dosage: 25 MILLIGRAM, QD
     Route: 048
     Dates: start: 2016, end: 201904
  23. DIAZEPAM. [Concomitant]
     Active Substance: DIAZEPAM
     Indication: MAJOR DEPRESSION
     Dosage: 2 AS PER REQUIRED
     Dates: start: 20190903, end: 20190904
  24. IMPLANON [Concomitant]
     Active Substance: ETONOGESTREL
     Indication: CONTRACEPTION
     Dosage: 68 UNK, EVERY 3 YEARS
     Route: 059
     Dates: start: 20190315, end: 20190515
  25. IRON [Concomitant]
     Active Substance: IRON
     Indication: SUPPLEMENTATION THERAPY
     Dosage: 1 DAILY
     Route: 048
     Dates: start: 2017
  26. ESCITALOPRAM [Concomitant]
     Active Substance: ESCITALOPRAM OXALATE
     Indication: SUICIDE ATTEMPT
     Dosage: 10 MILLIGRAM, AS PER REQUIRED
     Route: 048
     Dates: start: 201904, end: 201906
  27. ESCITALOPRAM [Concomitant]
     Active Substance: ESCITALOPRAM OXALATE
     Dosage: 15 MILLIGRAM, DAILY
     Route: 048
     Dates: start: 201906, end: 20190827
  28. VALDOXAN [Concomitant]
     Active Substance: AGOMELATINE
     Indication: DEPRESSION
     Dosage: 25 MILLIGRAM IN THE EVENING
     Route: 048
     Dates: start: 20190903, end: 20190905
  29. ESCITALOPRAM [Concomitant]
     Active Substance: ESCITALOPRAM OXALATE
     Indication: ANXIETY
     Dosage: 10 MILLIGRAM, QD
     Route: 048
     Dates: start: 201805, end: 201904
  30. TOPIRAMATE. [Concomitant]
     Active Substance: TOPIRAMATE
     Indication: SUICIDE ATTEMPT
     Dosage: 37.5 MILLIGRAM
     Route: 048
     Dates: start: 201904
  31. DIAZEPAM. [Concomitant]
     Active Substance: DIAZEPAM
     Indication: SUICIDE ATTEMPT
     Dosage: 84 MILLIGRAM ONCE
     Route: 048
     Dates: start: 20190904, end: 20190904
  32. IMPLANON NXT [Concomitant]
     Active Substance: ETONOGESTREL
     Dosage: 68 MILLIGRAM
  33. MAGNESIUM [Concomitant]
     Active Substance: MAGNESIUM
     Indication: SUPPLEMENTATION THERAPY
     Dosage: 1 DAILY
     Route: 048
     Dates: start: 2017
  34. MULTIVITAMINS [VITAMINS NOS] [Concomitant]
     Active Substance: VITAMINS
     Indication: SUPPLEMENTATION THERAPY
     Dosage: 1 DAILY
     Dates: start: 2017

REACTIONS (1)
  - Suicide attempt [Recovered/Resolved]

NARRATIVE: CASE EVENT DATE: 20190904
